FAERS Safety Report 6538181-6 (Version None)
Quarter: 2010Q1

REPORT INFORMATION
  Report Type: 
  Country: None (occurrence: None)
  Receive Date: 20100114
  Receipt Date: 20100108
  Transmission Date: 20100710
  Serious: Yes (Hospitalization, Other)
  Sender: FDA-Public Use
  Company Number: PHHO2009US15557

PATIENT
  Sex: Female
  Weight: 87.2 kg

DRUGS (10)
  1. AFINITOR [Suspect]
     Indication: LEIOMYOSARCOMA
     Dosage: 10 MG / DAY
     Route: 048
     Dates: start: 20091023, end: 20091113
  2. AFINITOR [Suspect]
     Dosage: 10 MG / DAY
     Route: 048
     Dates: start: 20091125, end: 20091213
  3. ATACAND [Concomitant]
  4. ATENOLOL [Concomitant]
  5. ATIVAN [Concomitant]
     Indication: NAUSEA
  6. CLOBETASOL PROPIONATE [Concomitant]
  7. BACTROBAN [Concomitant]
  8. COLDANGIN [Concomitant]
  9. LANTUS [Concomitant]
  10. LISIPROL [Concomitant]

REACTIONS (10)
  - AUTOIMMUNE DISORDER [None]
  - BLOOD GLUCOSE DECREASED [None]
  - DEHYDRATION [None]
  - DIARRHOEA [None]
  - FAILURE TO THRIVE [None]
  - GOUT [None]
  - HYPERGLYCAEMIA [None]
  - HYPOPHAGIA [None]
  - MALIGNANT NEOPLASM PROGRESSION [None]
  - PYREXIA [None]
